FAERS Safety Report 19448778 (Version 5)
Quarter: 2023Q1

REPORT INFORMATION
  Report Type: Spontaneous
  Country: US (occurrence: US)
  Receive Date: 20210622
  Receipt Date: 20230214
  Transmission Date: 20230417
  Serious: Yes (Hospitalization, Other)
  Sender: FDA-Public Use
  Company Number: US-AMNEAL PHARMACEUTICALS-2021-AMRX-02243

PATIENT
  Sex: Female
  Weight: 9.98 kg

DRUGS (3)
  1. VIGABATRIN [Suspect]
     Active Substance: VIGABATRIN
     Indication: Illness
     Dosage: 625 MILLIGRAM, BID
     Route: 048
  2. VIGABATRIN [Suspect]
     Active Substance: VIGABATRIN
     Dosage: 750 MILLIGRAM, BID (DOSE INCREASED BASED UPON HEIGHT AND WEIGHT)
     Route: 048
  3. VIGABATRIN [Suspect]
     Active Substance: VIGABATRIN
     Dosage: 625 MILLIGRAM, BID
     Route: 048

REACTIONS (5)
  - Seizure [Unknown]
  - COVID-19 [Unknown]
  - Enterovirus infection [Unknown]
  - Pneumonia [Unknown]
  - Product dose omission issue [Unknown]
